FAERS Safety Report 18044817 (Version 1)
Quarter: 2020Q3

REPORT INFORMATION
  Report Type: Other
  Country: CA (occurrence: CA)
  Receive Date: 20200720
  Receipt Date: 20200720
  Transmission Date: 20201103
  Serious: Yes (Other)
  Sender: FDA-Public Use
  Company Number: CA-BECTON DICKINSON-2020BDN00176

PATIENT
  Age: 42 Year
  Sex: Female
  Weight: 81 kg

DRUGS (29)
  1. ARAVA [Suspect]
     Active Substance: LEFLUNOMIDE
  2. ENBREL [Suspect]
     Active Substance: ETANERCEPT
     Indication: RHEUMATOID ARTHRITIS
     Route: 058
  3. COENZYME Q10 [Concomitant]
     Active Substance: DIETARY SUPPLEMENT\UBIDECARENONE
  4. VITAMIN E [Concomitant]
     Active Substance: .ALPHA.-TOCOPHEROL
  5. CHOLECALCIFEROL [Concomitant]
     Active Substance: CHOLECALCIFEROL
  6. DESOGESTREL/ETHINYL ESTRADIOL [Concomitant]
     Active Substance: DESOGESTREL\ETHINYL ESTRADIOL
  7. VITAMIN C [Concomitant]
     Active Substance: ASCORBIC ACID
  8. CETIRIZINE [Concomitant]
     Active Substance: CETIRIZINE HYDROCHLORIDE
  9. PREDNISONE. [Concomitant]
     Active Substance: PREDNISONE
  10. VENTOLIN [Concomitant]
     Active Substance: ALBUTEROL SULFATE
  11. CHLORAPREP [Suspect]
     Active Substance: CHLORHEXIDINE GLUCONATE\ISOPROPYL ALCOHOL
     Route: 061
  12. CIMZIA [Suspect]
     Active Substance: CERTOLIZUMAB PEGOL
     Indication: RHEUMATOID ARTHRITIS
     Dosage: 400 MG
     Route: 058
  13. ERGOCALCIFEROL. [Concomitant]
     Active Substance: ERGOCALCIFEROL
  14. PANTOLOC [Concomitant]
     Active Substance: PANTOPRAZOLE SODIUM
  15. ZOPICLONE [Concomitant]
     Active Substance: ZOPICLONE
  16. LEFLUNOMIDE. [Suspect]
     Active Substance: LEFLUNOMIDE
  17. HYDROXYCHLOROQUINE [Concomitant]
     Active Substance: HYDROXYCHLOROQUINE
  18. IBUPROFEN. [Concomitant]
     Active Substance: IBUPROFEN
  19. CIMZIA [Suspect]
     Active Substance: CERTOLIZUMAB PEGOL
     Dosage: 400 MG
     Route: 058
  20. ORENCIA [Suspect]
     Active Substance: ABATACEPT
  21. OXYCODONE/ACETAMINOPHEN (SANDOZ) [Suspect]
     Active Substance: ACETAMINOPHEN\OXYCODONE HYDROCHLORIDE
  22. ACETAMINOPHEN. [Suspect]
     Active Substance: ACETAMINOPHEN
  23. ACTEMRA [Suspect]
     Active Substance: TOCILIZUMAB
  24. METHOTREXATE. [Suspect]
     Active Substance: METHOTREXATE
  25. OXYCODONE [Suspect]
     Active Substance: OXYCODONE
  26. SIMPONI [Suspect]
     Active Substance: GOLIMUMAB
     Route: 058
  27. FISH OIL [Concomitant]
     Active Substance: FISH OIL
  28. TYLENOL [Concomitant]
     Active Substance: ACETAMINOPHEN
  29. VITAMIN D [Concomitant]
     Active Substance: VITAMIN D NOS

REACTIONS (21)
  - Diarrhoea [Unknown]
  - Vomiting [Unknown]
  - Joint swelling [Unknown]
  - Night sweats [Unknown]
  - Off label use [Unknown]
  - Back pain [Unknown]
  - Body temperature increased [Unknown]
  - Muscle spasticity [Unknown]
  - Pain [Unknown]
  - Urticaria [Unknown]
  - Asthenia [Unknown]
  - Lower respiratory tract infection [Unknown]
  - Respiratory disorder [Unknown]
  - Sinusitis [Unknown]
  - Peripheral swelling [Unknown]
  - Rash [Unknown]
  - Ear pain [Unknown]
  - Abdominal pain upper [Unknown]
  - Headache [Unknown]
  - Insomnia [Unknown]
  - Pruritus [Unknown]
